FAERS Safety Report 7551052-1 (Version None)
Quarter: 2011Q2

REPORT INFORMATION
  Report Type: 
  Country: None (occurrence: None)
  Receive Date: 20110609
  Receipt Date: 20110524
  Transmission Date: 20111010
  Serious: Yes (Other)
  Sender: FDA-Public Use
  Company Number: JPI-P-013917

PATIENT
  Age: 20 Year
  Sex: Male
  Weight: 61.2356 kg

DRUGS (8)
  1. XYREM [Suspect]
     Indication: NARCOLEPSY
     Dosage: ORAL; 4.5 GM (2.25 GM, 2 IN 1 D), ORAL; 9 GM (4.5 GM, 2 IN 1 D), ORAL
     Route: 048
     Dates: start: 20110124, end: 20110101
  2. XYREM [Suspect]
     Indication: SOMNOLENCE
     Dosage: ORAL; 4.5 GM (2.25 GM, 2 IN 1 D), ORAL; 9 GM (4.5 GM, 2 IN 1 D), ORAL
     Route: 048
     Dates: start: 20110124, end: 20110101
  3. XYREM [Suspect]
     Indication: NARCOLEPSY
     Dosage: ORAL; 4.5 GM (2.25 GM, 2 IN 1 D), ORAL; 9 GM (4.5 GM, 2 IN 1 D), ORAL
     Route: 048
     Dates: start: 20110101, end: 20110101
  4. XYREM [Suspect]
     Indication: SOMNOLENCE
     Dosage: ORAL; 4.5 GM (2.25 GM, 2 IN 1 D), ORAL; 9 GM (4.5 GM, 2 IN 1 D), ORAL
     Route: 048
     Dates: start: 20110101, end: 20110101
  5. XYREM [Suspect]
     Indication: NARCOLEPSY
     Dosage: ORAL; 4.5 GM (2.25 GM, 2 IN 1 D), ORAL; 9 GM (4.5 GM, 2 IN 1 D), ORAL
     Route: 048
     Dates: start: 20110101, end: 20110521
  6. XYREM [Suspect]
     Indication: SOMNOLENCE
     Dosage: ORAL; 4.5 GM (2.25 GM, 2 IN 1 D), ORAL; 9 GM (4.5 GM, 2 IN 1 D), ORAL
     Route: 048
     Dates: start: 20110101, end: 20110521
  7. CITALOPRAM HYDROBROMIDE [Concomitant]
  8. MODAFINIL [Concomitant]

REACTIONS (5)
  - APHASIA [None]
  - SLEEP PARALYSIS [None]
  - TREMOR [None]
  - INSOMNIA [None]
  - AMNESIA [None]
